FAERS Safety Report 4287919-X (Version None)
Quarter: 2004Q1

REPORT INFORMATION
  Report Type: 
  Country: None (occurrence: None)
  Receive Date: 20040205
  Receipt Date: 20040115
  Transmission Date: 20041129
  Serious: Yes (Hospitalization)
  Sender: FDA-Public Use
  Company Number: A04200300404

PATIENT
  Age: 81 Year
  Sex: Female

DRUGS (5)
  1. PLAVIX [Suspect]
     Indication: CORONARY ARTERY DISEASE
     Dosage: 75 MG OD ORAL
     Route: 048
     Dates: start: 20000801, end: 20030201
  2. DIGOXIN [Concomitant]
  3. CORVATON (MOLSIDOMINE) [Concomitant]
  4. NITROSORBON (ISOSORBIDE DINITRATE) [Concomitant]
  5. CORANGIN (ISOSORBIDE MONONITRATE) [Concomitant]

REACTIONS (6)
  - CHEST PAIN [None]
  - HAEMATOMA [None]
  - PANCYTOPENIA [None]
  - REFRACTORY ANAEMIA WITH RINGED SIDEROBLASTS [None]
  - STOMATITIS [None]
  - THROMBOCYTHAEMIA [None]
